FAERS Safety Report 9000989 (Version 1)
Quarter: 2012Q4

REPORT INFORMATION
  Report Type: Spontaneous
  Country: DE (occurrence: None)
  Receive Date: 20121226
  Receipt Date: 20121226
  Transmission Date: 20130627
  Serious: Yes (Hospitalization)
  Sender: FDA-Public Use
  Company Number: AG-2012-2013

PATIENT
  Age: 70 Year
  Sex: Male
  Weight: 75 kg

DRUGS (8)
  1. CHLORAMBUCIL [Suspect]
     Indication: B-CELL LYMPHOMA
     Route: 048
     Dates: start: 20091008
  2. RITUXIMAB [Suspect]
     Indication: B-CELL LYMPHOMA
     Route: 042
     Dates: start: 20121008
  3. MITOXANTRONE [Suspect]
     Indication: B-CELL LYMPHOMA
     Route: 042
     Dates: start: 20091008
  4. PREDNISOLONE [Suspect]
     Indication: B-CELL LYMPHOMA
     Dates: start: 20091008
  5. SIMVASTATIN [Suspect]
  6. L-THYROXIN (LEVOTHYROXINE SODIUM) [Concomitant]
  7. ZYLORIC (ALLOPURINOL) [Concomitant]
  8. SIMVASTATIN (SIMVASTATIN) [Concomitant]

REACTIONS (1)
  - Bacteraemia [None]
